FAERS Safety Report 14662503 (Version 1)
Quarter: 2018Q1

REPORT INFORMATION
  Report Type: Report from Study
  Country: KR (occurrence: KR)
  Receive Date: 20180321
  Receipt Date: 20180321
  Transmission Date: 20180509
  Serious: Yes (Other)
  Sender: FDA-Public Use
  Company Number: KR-ROCHE-2085489

PATIENT
  Age: 42 Year
  Sex: Female
  Weight: 55.1 kg

DRUGS (14)
  1. PARACETAMOL [Concomitant]
     Active Substance: ACETAMINOPHEN
     Route: 048
     Dates: start: 20180109
  2. ULTRACET [Concomitant]
     Active Substance: ACETAMINOPHEN\TRAMADOL HYDROCHLORIDE
     Indication: PREMEDICATION
     Route: 048
     Dates: start: 20180109
  3. HYDROCORTISONE. [Concomitant]
     Active Substance: HYDROCORTISONE
     Indication: PREMEDICATION
     Route: 042
     Dates: start: 20180109
  4. SULTAMICILLIN [Concomitant]
     Active Substance: SULTAMICILLIN
     Indication: WOUND INFECTION
     Route: 048
     Dates: start: 20180116, end: 20180122
  5. PERTUZUMAB. [Suspect]
     Active Substance: PERTUZUMAB
     Indication: BREAST CANCER
     Route: 065
     Dates: start: 20171128
  6. PERTUZUMAB. [Suspect]
     Active Substance: PERTUZUMAB
     Dosage: SUBSEQUENT DOSE TAKEN ON 09/JAN/2018, 30/JAN/2018, 20/FEB/2018
     Route: 065
     Dates: start: 20171219
  7. DOCETAXEL. [Suspect]
     Active Substance: DOCETAXEL
     Indication: BREAST CANCER
     Dosage: SUBSEQUENT DOSE TAKEN ON 19/DEC/2017, 09/JAN/2018, 30/JAN/2018, 20/FEB/2018
     Route: 065
     Dates: start: 20171128
  8. DEXAMETHASONE. [Concomitant]
     Active Substance: DEXAMETHASONE
     Indication: PREMEDICATION
     Route: 042
     Dates: start: 20180109
  9. ESOMEPRAZOLE [Concomitant]
     Active Substance: ESOMEPRAZOLE
     Indication: PROPHYLAXIS
     Route: 048
     Dates: start: 20180109
  10. MEDILAC DS [Concomitant]
     Indication: PROPHYLAXIS
     Route: 048
     Dates: start: 20180116, end: 20180122
  11. TRASTUZUMAB. [Suspect]
     Active Substance: TRASTUZUMAB
     Indication: BREAST CANCER
     Route: 042
     Dates: start: 20171128
  12. TRASTUZUMAB. [Suspect]
     Active Substance: TRASTUZUMAB
     Dosage: SUBSEQUENT DOSE TAKEN ON 09/JAN/2018, 30/JAN/2018, 20/FEB/2018
     Route: 042
     Dates: start: 20171219
  13. DIPHENYLPYRALINE [Concomitant]
     Active Substance: DIPHENYLPYRALINE
     Indication: PREMEDICATION
     Route: 042
     Dates: start: 20180109
  14. FILGRASTIM [Concomitant]
     Active Substance: FILGRASTIM
     Indication: NEUTROPHIL COUNT DECREASED
     Route: 016
     Dates: start: 20180116, end: 20180116

REACTIONS (2)
  - Wound infection [Recovered/Resolved]
  - Neutrophil count decreased [Recovering/Resolving]

NARRATIVE: CASE EVENT DATE: 20180116
